FAERS Safety Report 8246928-6 (Version None)
Quarter: 2012Q1

REPORT INFORMATION
  Report Type: 
  Country: None (occurrence: None)
  Receive Date: 20120327
  Receipt Date: 20110922
  Transmission Date: 20120608
  Serious: Yes (Hospitalization)
  Sender: FDA-Public Use
  Company Number: GB-023544

PATIENT
  Age: 66 Year
  Sex: Female

DRUGS (6)
  1. BENDROFLUMETHIAZIDE [Concomitant]
  2. (CHLORAMBUCIL) [Suspect]
     Indication: CHRONIC LYMPHOCYTIC LEUKAEMIA
     Dosage: 16 MG MONTHLY, ORAL
     Route: 048
     Dates: start: 20101105
  3. RITUXIMAB [Suspect]
     Indication: CHRONIC LYMPHOCYTIC LEUKAEMIA
     Dosage: 580 MG INTRAVENOUS (NOT OTHERWISE SPECIFIED)
     Route: 042
     Dates: start: 20101105
  4. ONDANSETRON [Concomitant]
  5. DOMPERIDONE [Concomitant]
  6. ZOLPIDEM [Concomitant]

REACTIONS (5)
  - DECREASED APPETITE [None]
  - ESCHERICHIA URINARY TRACT INFECTION [None]
  - FATIGUE [None]
  - DIZZINESS [None]
  - CHILLS [None]
